FAERS Safety Report 17743959 (Version 2)
Quarter: 2020Q2

REPORT INFORMATION
  Report Type: Report from Study
  Country: CO (occurrence: CO)
  Receive Date: 20200505
  Receipt Date: 20200529
  Transmission Date: 20200714
  Serious: Yes (Hospitalization)
  Sender: FDA-Public Use
  Company Number: CO-ASTELLAS-2020US015416

PATIENT
  Age: 58 Year
  Sex: Male

DRUGS (11)
  1. INSULIN [Concomitant]
     Active Substance: INSULIN NOS
     Indication: DIABETES MELLITUS
     Dosage: 6 UNITS IN DAY AND 5 UNITS IN NIGHT,TWICE DAILY
     Route: 058
  2. CARVEDILOL. [Concomitant]
     Active Substance: CARVEDILOL
     Indication: BLOOD PRESSURE ABNORMAL
     Dosage: 12.5 UNKNOWN UNIT, EVERY 12 HOURS
     Route: 048
  3. APIXABAN [Concomitant]
     Active Substance: APIXABAN
     Indication: ANTICOAGULANT THERAPY
     Route: 048
     Dates: start: 201901
  4. ATORVASTATIN [Concomitant]
     Active Substance: ATORVASTATIN
     Indication: BLOOD CHOLESTEROL
  5. ESOMEPRAZOLE. [Concomitant]
     Active Substance: ESOMEPRAZOLE MAGNESIUM
     Indication: REFLUX GASTRITIS
     Dosage: UNK UNK, ONCE DAILY
     Route: 048
  6. LINAGLIPTIN [Concomitant]
     Active Substance: LINAGLIPTIN
     Indication: BLOOD GLUCOSE ABNORMAL
     Route: 048
     Dates: start: 201907
  7. EUTIROX [Concomitant]
     Active Substance: LEVOTHYROXINE SODIUM
     Indication: THYROID DISORDER
     Dosage: 50 MCG, ONCE DAILY
     Route: 048
  8. PREDNISOLONE. [Concomitant]
     Active Substance: PREDNISOLONE
     Indication: RENAL TRANSPLANT
     Route: 048
     Dates: start: 20190526
  9. TACROLIMUS. [Suspect]
     Active Substance: TACROLIMUS
     Indication: RENAL TRANSPLANT
     Dosage: 4 MG (4 CAPSULES OF 1 MG), ONCE DAILY
     Route: 048
     Dates: start: 20190526
  10. MYCOPHENOLATE [Concomitant]
     Active Substance: MYCOPHENOLIC ACID
     Indication: RENAL TRANSPLANT
     Dosage: 360 MG, 2 IN MORNING AND 1 IN NIGHT,UNKNOWN FREQUENCY
     Route: 048
     Dates: start: 20190526
  11. ATORVASTATIN [Concomitant]
     Active Substance: ATORVASTATIN
     Indication: BLOOD TRIGLYCERIDES
     Route: 048

REACTIONS (3)
  - Fluid retention [Recovered/Resolved]
  - Subcutaneous abscess [Recovered/Resolved]
  - Staphylococcal abscess [Recovered/Resolved]

NARRATIVE: CASE EVENT DATE: 202001
